FAERS Safety Report 8823555 (Version 2)
Quarter: 2012Q4

REPORT INFORMATION
  Report Type: 
  Country: US (occurrence: US)
  Receive Date: 20121003
  Receipt Date: 20121127
  Transmission Date: 20130627
  Serious: No
  Sender: FDA-Public Use
  Company Number: US-VERTEX PHARMACEUTICAL INC.-2012-021070

PATIENT
  Age: 57 Year
  Sex: Male
  Weight: 86 kg

DRUGS (7)
  1. INCIVEK [Suspect]
     Indication: HEPATITIS C
     Dosage: 750 mg, tid
     Route: 048
     Dates: start: 20120615, end: 20120906
  2. RIBAVIRIN [Suspect]
     Indication: HEPATITIS C
     Dosage: 3 DF, bid
     Route: 048
     Dates: start: 20120615, end: 20120825
  3. RIBAVIRIN [Suspect]
     Dosage: 2 DF, bid
     Route: 048
     Dates: start: 20120825
  4. PEGASYS [Suspect]
     Indication: HEPATITIS C
     Dosage: 180 ?g, UNK
     Route: 058
     Dates: start: 20120615
  5. OMEPRAZOLE [Concomitant]
     Dosage: 40 mg, UNK
  6. MULTI VITAMIN CONCENTRATE [Concomitant]
  7. ANUSOL                             /00117301/ [Concomitant]

REACTIONS (2)
  - Dyspnoea [Recovered/Resolved]
  - Rash pruritic [Recovered/Resolved]
